FAERS Safety Report 6992397-3 (Version None)
Quarter: 2010Q3

REPORT INFORMATION
  Report Type: 
  Country: None (occurrence: None)
  Receive Date: 20100915
  Receipt Date: 20100908
  Transmission Date: 20110219
  Serious: Yes (Hospitalization)
  Sender: FDA-Public Use
  Company Number: 692405

PATIENT
  Age: 60 Year
  Sex: Male

DRUGS (6)
  1. VINCRISTINE SULFATE [Suspect]
     Indication: GLIOMA
  2. DEXAMETHASONE [Concomitant]
  3. LACTULOSE [Concomitant]
  4. (HERBAL PREPARATION) [Concomitant]
  5. (PROCARBAZINE) [Concomitant]
  6. (LOMUSTINE) [Concomitant]

REACTIONS (1)
  - JAUNDICE CHOLESTATIC [None]
